FAERS Safety Report 25394471 (Version 3)
Quarter: 2025Q3

REPORT INFORMATION
  Report Type: Report from Study
  Country: US (occurrence: US)
  Receive Date: 20250604
  Receipt Date: 20250924
  Transmission Date: 20251020
  Serious: Yes (Other)
  Sender: SUNOVION
  Company Number: US-SMPA-2025SPA006800

PATIENT
  Age: 69 Year
  Sex: Male

DRUGS (2)
  1. ORGOVYX [Suspect]
     Active Substance: RELUGOLIX
     Indication: Prostate cancer
     Route: 048
     Dates: start: 20220428, end: 20220428
  2. ORGOVYX [Suspect]
     Active Substance: RELUGOLIX
     Dosage: 120 MG, QD
     Route: 048
     Dates: start: 20220429

REACTIONS (5)
  - Seizure [Unknown]
  - Bone cancer [Unknown]
  - Illness [Not Recovered/Not Resolved]
  - Asthenia [Unknown]
  - Product use issue [Recovered/Resolved]
